FAERS Safety Report 11817639 (Version 4)
Quarter: 2016Q1

REPORT INFORMATION
  Report Type: Spontaneous
  Country: US (occurrence: US)
  Receive Date: 20151210
  Receipt Date: 20160322
  Transmission Date: 20160525
  Serious: No
  Sender: FDA-Public Use
  Company Number: US-JNJFOC-20151022932

PATIENT
  Age: 8 Year
  Sex: Male
  Weight: 43.09 kg

DRUGS (2)
  1. BUSPIRONE [Suspect]
     Active Substance: BUSPIRONE HYDROCHLORIDE
     Indication: PRODUCT USED FOR UNKNOWN INDICATION
     Route: 065
     Dates: start: 201303
  2. RISPERIDONE SOLUTION [Suspect]
     Active Substance: RISPERIDONE
     Indication: ANXIETY
     Route: 048
     Dates: start: 20130307, end: 201403

REACTIONS (3)
  - Gynaecomastia [Unknown]
  - Obesity [Unknown]
  - Emotional disorder [Unknown]

NARRATIVE: CASE EVENT DATE: 20151028
